FAERS Safety Report 5823759-5 (Version None)
Quarter: 2008Q3

REPORT INFORMATION
  Report Type: 
  Country: None (occurrence: None)
  Receive Date: 20080725
  Receipt Date: 20080716
  Transmission Date: 20090109
  Serious: Yes (Other)
  Sender: FDA-Public Use
  Company Number: JP-PFIZER INC-2008059671

PATIENT
  Age: 15 Year

DRUGS (5)
  1. ALPRAZOLAM [Suspect]
     Route: 048
  2. FLUVOXAMINE MALEATE [Suspect]
     Indication: PANIC DISORDER
     Dosage: DAILY DOSE:25MG
     Route: 048
  3. CLOMIPRAMINE HYDROCHLORIDE [Concomitant]
  4. SULPIRIDE [Concomitant]
  5. LORAZEPAM [Concomitant]
     Route: 048

REACTIONS (2)
  - ORTHOSTATIC HYPOTENSION [None]
  - SYNCOPE [None]
